FAERS Safety Report 8379837-2 (Version None)
Quarter: 2012Q1

REPORT INFORMATION
  Report Type: 
  Country: None (occurrence: None)
  Receive Date: 20120323
  Receipt Date: 20110819
  Transmission Date: 20120608
  Serious: Yes (Other)
  Sender: FDA-Public Use
  Company Number: 163-21880-11032654

PATIENT
  Age: 84 Year
  Sex: Male
  Weight: 77.1115 kg

DRUGS (5)
  1. REVLIMID [Suspect]
     Indication: MULTIPLE MYELOMA
     Dosage: 15 MG, DAILY X 7 DAYS/ OFF 7 DAYS, PO 10 MG , X21 DAYS OFF 7, PO
     Route: 048
     Dates: start: 20090501
  2. REVLIMID [Suspect]
     Indication: MULTIPLE MYELOMA
     Dosage: 15 MG, DAILY X 7 DAYS/ OFF 7 DAYS, PO 10 MG , X21 DAYS OFF 7, PO
     Route: 048
     Dates: start: 20110322, end: 20110519
  3. INDOCIN [Concomitant]
  4. LYRICA [Concomitant]
  5. VELCADE [Concomitant]

REACTIONS (2)
  - PLATELET COUNT DECREASED [None]
  - WHITE BLOOD CELL COUNT DECREASED [None]
